FAERS Safety Report 4421053-0 (Version None)
Quarter: 2004Q3

REPORT INFORMATION
  Report Type: 
  Country: None (occurrence: None)
  Receive Date: 20040803
  Receipt Date: 20040723
  Transmission Date: 20050211
  Serious: Yes (Other)
  Sender: FDA-Public Use
  Company Number: 2004IM000474

PATIENT
  Age: 49 Year
  Sex: Male
  Weight: 81.1939 kg

DRUGS (5)
  1. INFERGEN [Suspect]
     Indication: HEPATITIS C
     Dosage: 15 UG; QD
     Dates: start: 20040101, end: 20040301
  2. RIBAVIRIN [Suspect]
     Indication: HEPATITIS C
     Dosage: 1000 MG; QD; ORAL
     Route: 048
     Dates: start: 20040101, end: 20040301
  3. NADOLOL [Concomitant]
  4. DOXEPIN HCL [Concomitant]
  5. ZYRTEC [Concomitant]

REACTIONS (1)
  - HEPATIC ENCEPHALOPATHY [None]
